FAERS Safety Report 19838532 (Version 1)
Quarter: 2021Q3

REPORT INFORMATION
  Report Type: Spontaneous
  Country: US (occurrence: US)
  Receive Date: 20210914
  Receipt Date: 20210914
  Transmission Date: 20211014
  Serious: Yes (Other)
  Sender: FDA-Public Use
  Company Number: None

PATIENT
  Age: 66 Year
  Sex: Male
  Weight: .45 kg

DRUGS (1)
  1. NO DRIP NASAL MIST NASAL DECONGESTANT SEVERE CONGESTION [Suspect]
     Active Substance: OXYMETAZOLINE HYDROCHLORIDE
     Indication: NASAL CONGESTION
     Dosage: ?          QUANTITY:1 SPRAY(S);?
     Route: 055
     Dates: start: 20210908, end: 20210911

REACTIONS (2)
  - Product use complaint [None]
  - Product outer packaging issue [None]

NARRATIVE: CASE EVENT DATE: 20210911
